FAERS Safety Report 4805740-8 (Version None)
Quarter: 2005Q4

REPORT INFORMATION
  Report Type: 
  Country: None (occurrence: None)
  Receive Date: 20051021
  Receipt Date: 20051013
  Transmission Date: 20060501
  Serious: Yes (Other)
  Sender: FDA-Public Use
  Company Number: BE-ROCHE-420860

PATIENT
  Age: 57 Year
  Sex: Male
  Weight: 61 kg

DRUGS (10)
  1. FUZEON [Suspect]
     Route: 058
     Dates: start: 20041220
  2. EFAVIRENZ [Concomitant]
  3. LOPINAVIR [Concomitant]
  4. FOSAMPRENAVIR [Concomitant]
  5. STAVUDINE [Concomitant]
  6. LAMIVUDINE [Concomitant]
  7. RITONAVIR [Concomitant]
  8. TENOFOVIR [Concomitant]
  9. MYCOBUTIN [Concomitant]
     Indication: ATYPICAL MYCOBACTERIAL INFECTION
     Dates: start: 20050525
  10. UNSPECIFIED DRUG [Concomitant]
     Indication: ATYPICAL MYCOBACTERIAL INFECTION
     Dosage: REPORTED AS ^BICCLAR^.
     Dates: start: 20050528

REACTIONS (1)
  - ANAEMIA [None]
